FAERS Safety Report 8567076-1 (Version None)
Quarter: 2012Q3

REPORT INFORMATION
  Report Type: 
  Country: None (occurrence: None)
  Receive Date: 20120730
  Receipt Date: 20120730
  Transmission Date: 20120928
  Serious: Yes (Hospitalization, Other)
  Sender: FDA-Public Use
  Company Number: None

PATIENT
  Sex: Female

DRUGS (5)
  1. ESTRADIOL [Suspect]
     Indication: OSTEOPOROSIS
     Dosage: 1 MG ONCE A DAY PO
     Route: 048
  2. OMEPRAZOLE [Concomitant]
  3. RANITIDINE 300 MG [Concomitant]
  4. LISINOPRIL [Concomitant]
  5. PREMARIN [Suspect]
     Indication: OSTEOPOROSIS
     Dosage: .625 MG ONCE A DAY PO
     Route: 048

REACTIONS (3)
  - SURGICAL FAILURE [None]
  - CERVICAL POLYP [None]
  - SURGICAL PROCEDURE REPEATED [None]
